FAERS Safety Report 4515557-X (Version None)
Quarter: 2004Q4

REPORT INFORMATION
  Report Type: 
  Country: None (occurrence: None)
  Receive Date: 20041126
  Receipt Date: 20041115
  Transmission Date: 20050328
  Serious: Yes (Other)
  Sender: FDA-Public Use
  Company Number: 2004092996

PATIENT
  Age: 67 Year
  Sex: Male

DRUGS (8)
  1. LIPITOR [Suspect]
     Indication: BLOOD CHOLESTEROL INCREASED
     Dosage: 20 MG (1 IN 1 D), ORAL
     Route: 048
     Dates: end: 20040101
  2. LAMOTRIGINE [Concomitant]
  3. ASPIRIN [Concomitant]
  4. MINOXIDIL [Concomitant]
  5. WARFARIN SODIUM [Concomitant]
  6. AMIODARONE (AMIODARONE) [Concomitant]
  7. FUROSEMIDE [Concomitant]
  8. LABETALOL HCL [Concomitant]

REACTIONS (7)
  - AMNESIA [None]
  - COGNITIVE DISORDER [None]
  - CONFUSIONAL STATE [None]
  - DISORIENTATION [None]
  - DISTURBANCE IN ATTENTION [None]
  - INTELLIGENCE TEST ABNORMAL [None]
  - THINKING ABNORMAL [None]
